FAERS Safety Report 17781872 (Version 1)
Quarter: 2020Q2

REPORT INFORMATION
  Report Type: Spontaneous
  Country: US (occurrence: US)
  Receive Date: 20200513
  Receipt Date: 20200513
  Transmission Date: 20200714
  Serious: No
  Sender: FDA-Public Use
  Company Number: None

PATIENT
  Age: 64 Year
  Sex: Female

DRUGS (14)
  1. ATORVASTATIN [Concomitant]
     Active Substance: ATORVASTATIN
  2. ESCITALOPRAM [Concomitant]
     Active Substance: ESCITALOPRAM OXALATE
  3. PLAQUENIL [Concomitant]
     Active Substance: HYDROXYCHLOROQUINE SULFATE
  4. ACTEMRA [Suspect]
     Active Substance: TOCILIZUMAB
     Indication: RHEUMATOID ARTHRITIS
     Dosage: ?          OTHER DOSE:1 PEN;?
     Route: 058
     Dates: start: 20200324
  5. DOXYCYCL HYC [Concomitant]
  6. HYDROCHLOROT [Concomitant]
     Active Substance: HYDROCHLOROTHIAZIDE
  7. LOSARTAN POT [Concomitant]
     Active Substance: LOSARTAN POTASSIUM
  8. MELOXICAM. [Concomitant]
     Active Substance: MELOXICAM
  9. CYTOMEL [Concomitant]
     Active Substance: LIOTHYRONINE SODIUM
  10. SYNTHROID [Concomitant]
     Active Substance: LEVOTHYROXINE SODIUM
  11. OMEPRAZOLE. [Concomitant]
     Active Substance: OMEPRAZOLE
  12. VALSARTAN. [Concomitant]
     Active Substance: VALSARTAN
  13. PREDNISONE. [Concomitant]
     Active Substance: PREDNISONE
  14. SULFASALAZINE DELAYED-RELEASE [Concomitant]
     Active Substance: SULFASALAZINE

REACTIONS (2)
  - Lung disorder [None]
  - Condition aggravated [None]

NARRATIVE: CASE EVENT DATE: 202004
